FAERS Safety Report 26200049 (Version 1)
Quarter: 2025Q4

REPORT INFORMATION
  Report Type: Spontaneous
  Country: US (occurrence: US)
  Receive Date: 20251225
  Receipt Date: 20251225
  Transmission Date: 20260118
  Serious: Yes (Other)
  Sender: UROGEN PHARMA
  Company Number: US-UROGEN PHARMA LTD.-2025-UGN-000201

PATIENT

DRUGS (7)
  1. ZUSDURI [Suspect]
     Active Substance: MITOMYCIN
     Indication: Bladder transitional cell carcinoma
     Dosage: 40 MILLIGRAM, (INSTILLATION)
     Route: 065
     Dates: start: 202510, end: 202510
  2. ZUSDURI [Suspect]
     Active Substance: MITOMYCIN
     Dosage: 40 MILLIGRAM, (INSTILLATION)
     Route: 065
     Dates: start: 202510, end: 202510
  3. ZUSDURI [Suspect]
     Active Substance: MITOMYCIN
     Dosage: 40 MILLIGRAM, (INSTILLATION)
     Route: 065
     Dates: start: 202510, end: 202510
  4. ZUSDURI [Suspect]
     Active Substance: MITOMYCIN
     Dosage: 40 MILLIGRAM, (INSTILLATION)
     Route: 065
     Dates: start: 202510, end: 202510
  5. ZUSDURI [Suspect]
     Active Substance: MITOMYCIN
     Dosage: 40 MILLIGRAM, (INSTILLATION)
     Route: 065
     Dates: start: 202510, end: 202510
  6. ZUSDURI [Suspect]
     Active Substance: MITOMYCIN
     Dosage: 40 MILLIGRAM, (INSTILLATION)
     Route: 065
     Dates: start: 202510, end: 202510
  7. FLOMAX [Concomitant]
     Active Substance: TAMSULOSIN HYDROCHLORIDE
     Indication: Benign prostatic hyperplasia
     Dosage: UNK
     Route: 065

REACTIONS (4)
  - Urinary retention [Recovered/Resolved]
  - Bladder spasm [Unknown]
  - Pyrexia [Unknown]
  - Chills [Unknown]

NARRATIVE: CASE EVENT DATE: 20251001
